FAERS Safety Report 4940690-8 (Version None)
Quarter: 2006Q1

REPORT INFORMATION
  Report Type: 
  Country: None (occurrence: None)
  Receive Date: 20060313
  Receipt Date: 20060308
  Transmission Date: 20060701
  Serious: Yes (Hospitalization)
  Sender: FDA-Public Use
  Company Number: US-RB-2918-2006

PATIENT
  Sex: Female
  Weight: 75.82 kg

DRUGS (14)
  1. SUBOXONE [Suspect]
     Indication: DRUG DEPENDENCE
     Route: 060
     Dates: start: 20050830, end: 20060221
  2. SUBOXONE [Suspect]
     Dosage: PATIENT REPORTS TAKING 8 MG AM AND 4 MG QHS.
     Route: 060
     Dates: start: 20060222
  3. TETRACYCLINE [Concomitant]
     Indication: BACTERIAL INFECTION
     Route: 048
     Dates: start: 20051010, end: 20051011
  4. HYOSCYAMINE SULFATE [Concomitant]
     Indication: HYPERHIDROSIS
     Route: 048
     Dates: start: 20051010, end: 20051011
  5. MEDICINALPRODUCT NOT SPECIFIED BY SENDER [Concomitant]
     Indication: DEPRESSION
     Route: 048
     Dates: start: 20051013
  6. CLONAZEPAM [Concomitant]
     Indication: PANIC DISORDER
     Route: 048
  7. OXAZEPAM [Concomitant]
     Indication: DRUG DEPENDENCE
     Route: 048
     Dates: start: 20051011, end: 20051013
  8. METOPROLOL [Concomitant]
     Indication: POISONING
     Route: 048
     Dates: start: 20051011, end: 20051013
  9. LEVOTHYROXINE SODIUM [Concomitant]
     Indication: HYPERTHYROIDISM
     Route: 048
     Dates: start: 20050512
  10. SERTRALINE HYDROCHLORIDE [Concomitant]
     Indication: PANIC DISORDER
     Route: 048
  11. ALBUTEROL [Concomitant]
     Indication: ASTHMA
     Dates: start: 20051109
  12. NORTRIPTYLINE HCL [Concomitant]
     Indication: DEPRESSION
     Route: 048
     Dates: start: 20050512
  13. PROGESTERONE [Concomitant]
     Indication: HYPERPLASIA
     Dosage: PATIENT REPORTS ONE TABLET PER DAY.
     Route: 048
     Dates: start: 20051109
  14. ESTROGENS CONJUGATED [Concomitant]
     Indication: MENOPAUSE
     Dosage: PATIENT REPORTS ONE TABLET PER DAY.
     Route: 048
     Dates: start: 20051109

REACTIONS (5)
  - ADVERSE EVENT [None]
  - ANXIETY [None]
  - HYPERHIDROSIS [None]
  - HYPERVENTILATION [None]
  - TACHYCARDIA [None]
